FAERS Safety Report 20963492 (Version 2)
Quarter: 2022Q2

REPORT INFORMATION
  Report Type: Spontaneous
  Country: PL (occurrence: PL)
  Receive Date: 20220615
  Receipt Date: 20220617
  Transmission Date: 20220721
  Serious: Yes (Hospitalization, Other)
  Sender: FDA-Public Use
  Company Number: PL-AMGEN-POLSP2022099495

PATIENT
  Age: 44 Year
  Sex: Male

DRUGS (5)
  1. BLINCYTO [Suspect]
     Active Substance: BLINATUMOMAB
     Indication: Acute lymphocytic leukaemia
     Dosage: 9 MICROGRAM, Q2WK
     Route: 041
     Dates: start: 202201
  2. BLINCYTO [Suspect]
     Active Substance: BLINATUMOMAB
     Dosage: 28 MICROGRAM, Q2WK
     Route: 041
     Dates: start: 202201
  3. DEXAMETHASONE [Concomitant]
     Active Substance: DEXAMETHASONE
     Dosage: 24 MILLIGRAM
     Dates: start: 20211230
  4. BUSULFAN [Concomitant]
     Active Substance: BUSULFAN
     Dosage: UNK
  5. FLUDARABINE [Concomitant]
     Active Substance: FLUDARABINE PHOSPHATE
     Dosage: UNK

REACTIONS (5)
  - Acute lymphocytic leukaemia recurrent [Unknown]
  - Stomatitis [Unknown]
  - Cytomegalovirus infection reactivation [Unknown]
  - Body temperature increased [Unknown]
  - Chills [Unknown]

NARRATIVE: CASE EVENT DATE: 20220101
